FAERS Safety Report 6077487-4 (Version None)
Quarter: 2009Q1

REPORT INFORMATION
  Report Type: 
  Country: None (occurrence: None)
  Receive Date: 20090213
  Receipt Date: 20081229
  Transmission Date: 20090719
  Serious: No
  Sender: FDA-Public Use
  Company Number: A0761671A

PATIENT
  Sex: Male

DRUGS (6)
  1. TREXIMET [Suspect]
     Indication: MIGRAINE
     Dosage: 1TAB TWICE PER DAY
     Route: 048
     Dates: start: 20081201, end: 20081201
  2. CELEXA [Concomitant]
  3. IMITREX [Concomitant]
  4. REMERON [Concomitant]
  5. CLONAZEPAM [Concomitant]
  6. TYLENOL [Concomitant]

REACTIONS (1)
  - NAUSEA [None]
